FAERS Safety Report 8859965 (Version 2)
Quarter: 2012Q4

REPORT INFORMATION
  Report Type: 
  Country: CH (occurrence: CH)
  Receive Date: 20121025
  Receipt Date: 20121101
  Transmission Date: 20130627
  Serious: Yes (Other)
  Sender: FDA-Public Use
  Company Number: CH-PFIZER INC-2012265261

PATIENT
  Age: 3 Year
  Sex: Male

DRUGS (1)
  1. PODOMEXEF [Suspect]
     Indication: PHARYNGITIS
     Dosage: UNK
     Route: 048

REACTIONS (1)
  - Neurological symptom [Not Recovered/Not Resolved]
